FAERS Safety Report 7536646-1 (Version None)
Quarter: 2011Q2

REPORT INFORMATION
  Report Type: 
  Country: None (occurrence: None)
  Receive Date: 20110609
  Receipt Date: 20110524
  Transmission Date: 20111010
  Serious: Yes (Hospitalization)
  Sender: FDA-Public Use
  Company Number: A0784431A

PATIENT
  Age: 57 Year
  Sex: Female
  Weight: 84.1 kg

DRUGS (5)
  1. PRILOSEC [Concomitant]
  2. LOPRESSOR [Concomitant]
  3. LIPITOR [Concomitant]
  4. AVANDIA [Suspect]
     Dosage: 8MG PER DAY
     Route: 048
     Dates: start: 20060101, end: 20070101
  5. ACCUPRIL [Concomitant]

REACTIONS (3)
  - CORONARY ARTERY DISEASE [None]
  - ARRHYTHMIA [None]
  - MYOCARDIAL INFARCTION [None]
